FAERS Safety Report 6904910-2 (Version None)
Quarter: 2010Q3

REPORT INFORMATION
  Report Type: 
  Country: None (occurrence: None)
  Receive Date: 20100804
  Receipt Date: 20090803
  Transmission Date: 20110219
  Serious: No
  Sender: FDA-Public Use
  Company Number: US-PFIZER INC-2009225402

PATIENT
  Sex: Male

DRUGS (4)
  1. LYRICA [Suspect]
     Indication: KNEE ARTHROPLASTY
     Dosage: UNK
     Dates: start: 20090522, end: 20090607
  2. OXYCONTIN [Concomitant]
     Dosage: UNK
  3. SOMA [Concomitant]
     Dosage: UNK
  4. EFFEXOR [Concomitant]
     Dosage: UNK

REACTIONS (1)
  - SWELLING FACE [None]
